FAERS Safety Report 7361427-1 (Version None)
Quarter: 2011Q1

REPORT INFORMATION
  Report Type: 
  Country: None (occurrence: None)
  Receive Date: 20110315
  Receipt Date: 20110315
  Transmission Date: 20110831
  Serious: Yes (Disabling)
  Sender: FDA-Public Use
  Company Number: None

PATIENT
  Age: 60 Year
  Sex: Female
  Weight: 70.3075 kg

DRUGS (2)
  1. LEVOTHYROXIN 112 MCG MYLAN [Suspect]
     Indication: HYPOTHYROIDISM
     Dosage: 112 MCG ONE A DAY
     Dates: start: 20100514, end: 20100604
  2. SYNTHROID [Suspect]
     Indication: HYPOTHYROIDISM
     Dosage: 112 MCG ONE A DAY
     Dates: start: 20100414, end: 20100513

REACTIONS (5)
  - FEELING COLD [None]
  - CONSTIPATION [None]
  - ASTHENIA [None]
  - DIZZINESS [None]
  - TREATMENT FAILURE [None]
